FAERS Safety Report 9426088 (Version 4)
Quarter: 2013Q4

REPORT INFORMATION
  Report Type: Spontaneous
  Country: FR (occurrence: FR)
  Receive Date: 20130730
  Receipt Date: 20131023
  Transmission Date: 20140711
  Serious: Yes (Death, Hospitalization)
  Sender: FDA-Public Use
  Company Number: 2013SP005507

PATIENT
  Age: 53 Year
  Sex: Female

DRUGS (14)
  1. VANCOMYCIN [Suspect]
     Indication: PRODUCT USED FOR UNKNOWN INDICATION
     Route: 042
     Dates: start: 2013, end: 20130624
  2. PANTOPRAZOLE SODIUM SESQUIHYDRATE [Suspect]
     Indication: PRODUCT USED FOR UNKNOWN INDICATION
     Route: 042
     Dates: start: 201304, end: 20130629
  3. PREDNISOLONE [Suspect]
     Indication: PRODUCT USED FOR UNKNOWN INDICATION
     Route: 048
     Dates: start: 201304
  4. GANCICLOVIR SODIUM [Suspect]
     Indication: HUMAN HERPESVIRUS 6 INFECTION
     Route: 042
     Dates: start: 20130603, end: 20130627
  5. SULFAMETHOXAZOLE [Suspect]
     Indication: PRODUCT USED FOR UNKNOWN INDICATION
     Route: 048
     Dates: start: 20130624, end: 20130627
  6. TRIMETHOPRIM [Suspect]
     Indication: PRODUCT USED FOR UNKNOWN INDICATION
     Route: 048
     Dates: start: 20130624, end: 20130627
  7. AMIKACIN [Suspect]
     Indication: PRODUCT USED FOR UNKNOWN INDICATION
     Route: 042
     Dates: start: 2013, end: 20130624
  8. CICLOSPORIN [Suspect]
     Indication: PRODUCT USED FOR UNKNOWN INDICATION
     Route: 048
     Dates: start: 201304
  9. TICARCILLIN DISODIUM/CLAVULANATE POTASSIUM [Suspect]
     Indication: PRODUCT USED FOR UNKNOWN INDICATION
     Route: 042
     Dates: start: 20130623, end: 20130623
  10. TICARCILLIN DISODIUM/CLAVULANATE POTASSIUM [Suspect]
     Indication: PRODUCT USED FOR UNKNOWN INDICATION
     Dates: start: 20130628
  11. INSULIN [Suspect]
     Indication: DIABETES MELLITUS
     Route: 058
     Dates: start: 201304
  12. NORADRENALINE /00127501/ [Concomitant]
     Dates: start: 201306
  13. SUFENTANIL [Concomitant]
     Dates: start: 201306
  14. MIDAZOLAM [Concomitant]
     Dates: start: 201306

REACTIONS (5)
  - Neutropenia [Recovering/Resolving]
  - Anaemia [Fatal]
  - Thrombocytopenia [Fatal]
  - Diarrhoea [Not Recovered/Not Resolved]
  - Multi-organ failure [Fatal]
